FAERS Safety Report 8760610 (Version 1)
Quarter: 2012Q4

REPORT INFORMATION
  Report Type: Spontaneous
  Country: US (occurrence: None)
  Receive Date: 20120828
  Receipt Date: 20120828
  Transmission Date: 20130627
  Serious: Yes (Hospitalization, Other)
  Sender: FDA-Public Use
  Company Number: None

PATIENT
  Age: 33 Year
  Sex: Male
  Weight: 90 kg

DRUGS (1)
  1. ZYPREXIA [Suspect]
     Indication: ATTENTION DEFICIT DISORDER
     Route: 060
     Dates: start: 20090317, end: 20100808

REACTIONS (8)
  - Pain [None]
  - Abdominal pain [None]
  - Nausea [None]
  - Insomnia [None]
  - Tremor [None]
  - Anxiety [None]
  - Hypopnoea [None]
  - Vocal cord disorder [None]
